FAERS Safety Report 19965347 (Version 4)
Quarter: 2021Q4

REPORT INFORMATION
  Report Type: Report from Study
  Country: ES (occurrence: None)
  Receive Date: 20211018
  Receipt Date: 20211209
  Transmission Date: 20220303
  Serious: Yes (Hospitalization)
  Sender: FDA-Public Use
  Company Number: ES-ROCHE-2916832

PATIENT
  Age: 27 Year
  Sex: Female
  Weight: 58 kg

DRUGS (33)
  1. TIRAGOLUMAB [Suspect]
     Active Substance: TIRAGOLUMAB
     Indication: Triple negative breast cancer
     Dosage: START DATE OF MOST RECENT DOSE OF STUDY DRUG PRIOR TO SERIOUS ADVERSE EVENT: 08/JUL/2021.
     Route: 042
     Dates: start: 20210520
  2. ATEZOLIZUMAB [Suspect]
     Active Substance: ATEZOLIZUMAB
     Indication: Triple negative breast cancer
     Dosage: START DATE OF MOST RECENT DOSE OF STUDY DRUG PRIOR TO SERIOUS ADVERSE EVENT: 08/JUL/2021.
     Route: 042
     Dates: start: 20210520
  3. PACLITAXEL [Suspect]
     Active Substance: PACLITAXEL
     Indication: Triple negative breast cancer
     Dosage: START DATE OF MOST RECENT DOSE OF STUDY DRUG PRIOR TO SERIOUS ADVERSE EVENT: 12/AUG/2021
     Route: 042
     Dates: start: 20210520
  4. DOXORUBICIN [Suspect]
     Active Substance: DOXORUBICIN
     Indication: Triple negative breast cancer
     Dosage: START DATE OF MOST RECENT DOSE OF STUDY DRUG PRIOR TO SERIOUS ADVERSE EVENT: 02/SEP/2021.?START DATE
     Route: 042
     Dates: start: 20210819
  5. CYCLOPHOSPHAMIDE [Suspect]
     Active Substance: CYCLOPHOSPHAMIDE
     Indication: Triple negative breast cancer
     Dosage: START DATE OF MOST RECENT DOSE OF STUDY DRUG PRIOR TO SERIOUS ADVERSE EVENT: 02/SEP/2021.?START DATE
     Route: 042
     Dates: start: 20210819
  6. OMEPRAZOLE [Concomitant]
     Active Substance: OMEPRAZOLE
     Indication: Gastrooesophageal reflux disease
     Dates: start: 20210715
  7. PREDNISONE [Concomitant]
     Active Substance: PREDNISONE
     Indication: Alanine aminotransferase increased
     Route: 048
     Dates: start: 20210715, end: 20210819
  8. PREDNISONE [Concomitant]
     Active Substance: PREDNISONE
     Indication: Prophylaxis
     Route: 048
     Dates: start: 20210820, end: 20210901
  9. PREDNISONE [Concomitant]
     Active Substance: PREDNISONE
     Route: 048
     Dates: start: 20210902, end: 20210917
  10. PREDNISONE [Concomitant]
     Active Substance: PREDNISONE
     Route: 048
     Dates: start: 20211004, end: 20211009
  11. PREDNISONE [Concomitant]
     Active Substance: PREDNISONE
     Route: 048
     Dates: start: 20211010, end: 20211010
  12. PREDNISONE [Concomitant]
     Active Substance: PREDNISONE
     Route: 048
     Dates: start: 20211011
  13. OLANZAPINE [Concomitant]
     Active Substance: OLANZAPINE
     Indication: Prophylaxis
     Dates: start: 20210819, end: 20210822
  14. FILGRASTIM [Concomitant]
     Active Substance: FILGRASTIM
     Dosage: 0.3 BEATS/MIN
     Route: 058
     Dates: start: 20210823
  15. FILGRASTIM [Concomitant]
     Active Substance: FILGRASTIM
     Dosage: 0.3 BEATS/MIN
     Route: 058
     Dates: start: 20210824
  16. FILGRASTIM [Concomitant]
     Active Substance: FILGRASTIM
     Dosage: 0.3 BEATS/MIN
     Route: 058
     Dates: start: 20210825
  17. FILGRASTIM [Concomitant]
     Active Substance: FILGRASTIM
     Dosage: 0.3 BEATS/MIN
     Route: 058
     Dates: start: 20210826
  18. FILGRASTIM [Concomitant]
     Active Substance: FILGRASTIM
     Dosage: 0.3 BEATS/MIN
     Route: 058
     Dates: start: 20210827
  19. FILGRASTIM [Concomitant]
     Active Substance: FILGRASTIM
     Dosage: 0.3 BEATS/MIN
     Route: 058
     Dates: start: 20210906
  20. FILGRASTIM [Concomitant]
     Active Substance: FILGRASTIM
     Dosage: 0.3 BEATS/MIN
     Route: 058
     Dates: start: 20210907
  21. FILGRASTIM [Concomitant]
     Active Substance: FILGRASTIM
     Dosage: 0.3 BEATS/MIN
     Route: 058
     Dates: start: 20210908
  22. FILGRASTIM [Concomitant]
     Active Substance: FILGRASTIM
     Dosage: 0.3 BEATS/MIN
     Route: 058
     Dates: start: 20210909
  23. FILGRASTIM [Concomitant]
     Active Substance: FILGRASTIM
     Dosage: 0.3 BEATS/MIN
     Route: 058
     Dates: start: 20210910
  24. FILGRASTIM [Concomitant]
     Active Substance: FILGRASTIM
     Route: 058
  25. AMOXICILLIN\CLAVULANIC ACID [Concomitant]
     Active Substance: AMOXICILLIN\CLAVULANIC ACID
     Indication: Pyrexia
     Dates: start: 20210913, end: 20210914
  26. PIPERACILLIN SODIUM\TAZOBACTAM SODIUM [Concomitant]
     Active Substance: PIPERACILLIN SODIUM\TAZOBACTAM SODIUM
     Indication: Pyrexia
     Dates: start: 20210914, end: 20210917
  27. CEFDITOREN [Concomitant]
     Active Substance: CEFDITOREN
     Indication: Pyrexia
     Dates: start: 20210915, end: 20210917
  28. CLINDAMYCIN [Concomitant]
     Active Substance: CLINDAMYCIN
     Indication: Pyrexia
     Dates: start: 20210915, end: 20210917
  29. BEMIPARINA SODICA [Concomitant]
     Indication: Thrombosis
     Dates: start: 20211004
  30. BEMIPARINA SODICA [Concomitant]
     Indication: Prophylaxis
  31. DEXCHLORPHENIRAMINE [Concomitant]
     Active Substance: DEXCHLORPHENIRAMINE
     Indication: Prophylaxis
     Dates: start: 20211004
  32. EBASTINE [Concomitant]
     Active Substance: EBASTINE
     Indication: Prophylaxis
     Dates: start: 20211004
  33. POTASSIUM [Concomitant]
     Active Substance: POTASSIUM
     Indication: Prophylaxis
     Dates: start: 20211004

REACTIONS (2)
  - Acute respiratory failure [Recovered/Resolved]
  - Pyrexia [Recovered/Resolved]

NARRATIVE: CASE EVENT DATE: 20210917
